FAERS Safety Report 10401715 (Version 1)
Quarter: 2014Q3

REPORT INFORMATION
  Report Type: Spontaneous
  Country: US (occurrence: None)
  Receive Date: 20140819
  Receipt Date: 20140819
  Transmission Date: 20150326
  Serious: Yes (Other)
  Sender: FDA-Public Use
  Company Number: None

PATIENT
  Age: 42 Year
  Sex: Female
  Weight: 52.16 kg

DRUGS (1)
  1. BUSPIRONE [Suspect]
     Active Substance: BUSPIRONE HYDROCHLORIDE
     Indication: ANXIETY
     Dosage: 2 TABS FOUR TIMES DAILY TAKEN BY MOUTH
     Route: 048
     Dates: start: 20140723, end: 20140805

REACTIONS (5)
  - Product substitution issue [None]
  - Feeling abnormal [None]
  - Anxiety [None]
  - Depression [None]
  - Product quality issue [None]

NARRATIVE: CASE EVENT DATE: 20140714
